FAERS Safety Report 9653299 (Version 1)
Quarter: 2013Q4

REPORT INFORMATION
  Report Type: Spontaneous
  Country: US (occurrence: None)
  Receive Date: 20131028
  Receipt Date: 20131028
  Transmission Date: 20140711
  Serious: Yes (Hospitalization, Other)
  Sender: FDA-Public Use
  Company Number: US-MDCO-13-00020

PATIENT
  Age: 62 Year
  Sex: Male
  Weight: 86.18 kg

DRUGS (6)
  1. ANGIOMAX [Suspect]
     Indication: PERCUTANEOUS CORONARY INTERVENTION
     Route: 042
     Dates: start: 20131008, end: 20131008
  2. BRILINTA [Concomitant]
  3. LORAZEPAM [Concomitant]
  4. ATROPINE (ATROPINE) [Concomitant]
  5. FENTANYL (FENTANYL) [Concomitant]
  6. NITROGLYCERIN (GLYCERYL TRINITRATE) [Concomitant]

REACTIONS (1)
  - Ventricular fibrillation [None]
